FAERS Safety Report 12240776 (Version 1)
Quarter: 2016Q2

REPORT INFORMATION
  Report Type: Spontaneous
  Country: US (occurrence: US)
  Receive Date: 20160406
  Receipt Date: 20160406
  Transmission Date: 20160815
  Serious: Yes (Other)
  Sender: FDA-Public Use
  Company Number: US-TEVA-631285USA

PATIENT
  Sex: Female

DRUGS (6)
  1. VITAMIN C [Concomitant]
     Active Substance: ASCORBIC ACID
     Indication: PROPHYLAXIS URINARY TRACT INFECTION
     Dosage: 500 MILLIGRAM DAILY;
     Route: 048
     Dates: start: 2014
  2. PREMARIN [Suspect]
     Active Substance: ESTROGENS, CONJUGATED
     Dosage: TWICE A WEEK
     Route: 067
     Dates: start: 20151216, end: 20151216
  3. METHENAMINE HIPP [Concomitant]
     Indication: PROPHYLAXIS URINARY TRACT INFECTION
     Dosage: 2 GRAM DAILY;
     Route: 048
     Dates: start: 2014, end: 2014
  4. PREMARIN [Suspect]
     Active Substance: ESTROGENS, CONJUGATED
     Indication: VULVOVAGINAL DRYNESS
     Dosage: .5 GRAM DAILY;
     Route: 067
     Dates: start: 2015, end: 20151214
  5. PREMARIN [Suspect]
     Active Substance: ESTROGENS, CONJUGATED
     Route: 067
     Dates: start: 20151217, end: 20151217
  6. SULFAMETHOXAZOLE-TRIMETHOPRIM (SMZ) [Suspect]
     Active Substance: SULFAMETHOXAZOLE\TRIMETHOPRIM
     Indication: URINARY TRACT INFECTION
     Dosage: 2 DOSAGE FORMS DAILY;
     Route: 048

REACTIONS (9)
  - Pruritus [Recovered/Resolved]
  - Erythema [Recovered/Resolved]
  - Insomnia [Recovered/Resolved]
  - Scratch [Recovered/Resolved]
  - Swelling face [Recovered/Resolved]
  - Dyspnoea [Recovered/Resolved]
  - Pharyngeal oedema [Recovered/Resolved]
  - Overdose [Recovered/Resolved]
  - Vulvovaginal pruritus [Recovered/Resolved]

NARRATIVE: CASE EVENT DATE: 2015
